FAERS Safety Report 6137893-6 (Version None)
Quarter: 2009Q1

REPORT INFORMATION
  Report Type: 
  Country: None (occurrence: None)
  Receive Date: 20090331
  Receipt Date: 20090310
  Transmission Date: 20090719
  Serious: Yes (Death, Hospitalization)
  Sender: FDA-Public Use
  Company Number: SA-PFIZER INC-2009175100

PATIENT

DRUGS (1)
  1. CELEBREX [Suspect]
     Indication: MYOSITIS
     Dosage: 200 MG, UNK
     Route: 048

REACTIONS (1)
  - CARDIAC DISORDER [None]
